FAERS Safety Report 6389277-3 (Version None)
Quarter: 2009Q4

REPORT INFORMATION
  Report Type: 
  Country: None (occurrence: None)
  Receive Date: 20091006
  Receipt Date: 20090929
  Transmission Date: 20100525
  Serious: Yes (Other)
  Sender: FDA-Public Use
  Company Number: CHPA2009US19512

PATIENT
  Sex: Male

DRUGS (1)
  1. MAALOX MS TOTAL STOMACH RELIEF (NCH) [Suspect]
     Indication: PEPTIC ULCER
     Route: 048

REACTIONS (3)
  - FAECES DISCOLOURED [None]
  - HAEMORRHAGE [None]
  - MELAENA [None]
